FAERS Safety Report 5006910-9 (Version None)
Quarter: 2006Q2

REPORT INFORMATION
  Report Type: 
  Country: None (occurrence: None)
  Receive Date: 20060517
  Receipt Date: 20060504
  Transmission Date: 20061013
  Serious: Yes (Hospitalization)
  Sender: FDA-Public Use
  Company Number: 2006040031

PATIENT
  Age: 57 Year
  Sex: Male
  Weight: 64 kg

DRUGS (7)
  1. SUTENT [Suspect]
     Indication: METASTATIC RENAL CELL CARCINOMA
     Dosage: 50 MG (50 MG, 1 IN 1 D), ORAL
     Route: 048
     Dates: start: 20060228, end: 20060320
  2. ACERBON (LISINOPRIL) [Concomitant]
  3. BAYOTENSIN (NITRENDIPINE) [Concomitant]
  4. TRAMADOL HCL [Concomitant]
  5. FORTECORTIN (DEXAMETHASONE) [Concomitant]
  6. PANTOZOL (PANTOPRAZOLE SODIUM) [Concomitant]
  7. ENOXAPARIN SODIUM [Concomitant]

REACTIONS (3)
  - HYPERTENSION [None]
  - SOMNOLENCE [None]
  - VOMITING [None]
